FAERS Safety Report 6263451-9 (Version None)
Quarter: 2009Q3

REPORT INFORMATION
  Report Type: 
  Country: None (occurrence: None)
  Receive Date: 20090710
  Receipt Date: 20090605
  Transmission Date: 20100115
  Serious: No
  Sender: FDA-Public Use
  Company Number: A0771553A

PATIENT
  Age: 76 Year
  Sex: Female

DRUGS (8)
  1. FLOVENT [Suspect]
     Indication: CHRONIC OBSTRUCTIVE PULMONARY DISEASE
     Dosage: 3PUFF TWICE PER DAY
     Route: 055
     Dates: start: 20040601
  2. THEO-DUR [Concomitant]
  3. FORADIL [Concomitant]
  4. SPIRIVA [Concomitant]
  5. SINGULAIR [Concomitant]
  6. ALBUTEROL [Concomitant]
  7. PEPCID [Concomitant]
  8. PREDNISONE TAB [Concomitant]

REACTIONS (2)
  - DYSPNOEA [None]
  - PRODUCT QUALITY ISSUE [None]
